FAERS Safety Report 6285511-9 (Version None)
Quarter: 2009Q3

REPORT INFORMATION
  Report Type: 
  Country: None (occurrence: None)
  Receive Date: 20090727
  Receipt Date: 20090713
  Transmission Date: 20100115
  Serious: Yes (Hospitalization, Other)
  Sender: FDA-Public Use
  Company Number: PHHY2008ZA08244

PATIENT
  Sex: Male
  Weight: 85 kg

DRUGS (4)
  1. COARTEM [Suspect]
     Dosage: 20/120 MG
  2. BETA BLOCKING AGENTS [Concomitant]
     Indication: HYPERTENSION
  3. DIAZEPAM [Concomitant]
  4. THIAMINE HCL [Concomitant]

REACTIONS (23)
  - ABASIA [None]
  - ATAXIA [None]
  - CEREBELLAR ATAXIA [None]
  - CEREBELLAR SYNDROME [None]
  - CONFUSIONAL STATE [None]
  - CONSTIPATION [None]
  - COORDINATION ABNORMAL [None]
  - DYSARTHRIA [None]
  - DYSKINESIA [None]
  - DYSSTASIA [None]
  - GAIT DISTURBANCE [None]
  - HYPERHIDROSIS [None]
  - HYPERTENSION [None]
  - HYPOREFLEXIA [None]
  - INTENTION TREMOR [None]
  - MALAISE [None]
  - MOTOR DYSFUNCTION [None]
  - MUSCULAR WEAKNESS [None]
  - MYOCLONUS [None]
  - NERVOUSNESS [None]
  - PHOTOPHOBIA [None]
  - SACCADIC EYE MOVEMENT [None]
  - TREMOR [None]
